FAERS Safety Report 13014460 (Version 4)
Quarter: 2017Q4

REPORT INFORMATION
  Report Type: Spontaneous
  Country: DE (occurrence: DE)
  Receive Date: 20161209
  Receipt Date: 20171223
  Transmission Date: 20180320
  Serious: Yes (Life-Threatening, Hospitalization)
  Sender: FDA-Public Use
  Company Number: DE-MYLANLABS-2016M1044291

PATIENT
  Age: 37 Year
  Sex: Female
  Weight: 90 kg

DRUGS (1)
  1. FASTJEKT [Suspect]
     Active Substance: EPINEPHRINE
     Indication: DYSPNOEA
     Dosage: 0.3 MG, TOTAL
     Route: 030
     Dates: start: 20161002, end: 20161002

REACTIONS (4)
  - Injection site abscess [Not Recovered/Not Resolved]
  - Muscle abscess [Not Recovered/Not Resolved]
  - Clostridial infection [Not Recovered/Not Resolved]
  - Gas gangrene [Not Recovered/Not Resolved]

NARRATIVE: CASE EVENT DATE: 20161003
